FAERS Safety Report 8857982 (Version 1)
Quarter: 2012Q4

REPORT INFORMATION
  Report Type: 
  Country: US (occurrence: US)
  Receive Date: 20121024
  Receipt Date: 20121024
  Transmission Date: 20130627
  Serious: No
  Sender: FDA-Public Use
  Company Number: US-AMGEN-USASP2012002863

PATIENT
  Age: 18 Year
  Sex: Female
  Weight: 81.18 kg

DRUGS (12)
  1. ENBREL [Suspect]
     Indication: RHEUMATOID ARTHRITIS
     Dosage: 50 mg, qwk
     Dates: start: 19881216, end: 20111230
  2. ENBREL [Suspect]
     Dosage: 50 mg, qwk
     Route: 058
     Dates: start: 20051222, end: 200710
  3. ENBREL [Suspect]
  4. VITAMIN C                          /00008001/ [Concomitant]
     Dosage: UNK
  5. MULTIVITAMIN                       /00097801/ [Concomitant]
     Dosage: UNK
  6. VITAMIN D2 + CALCIUM               /00188401/ [Concomitant]
     Dosage: 500 mg, UNK
     Route: 048
  7. VITAMIN D2 + CALCIUM               /00188401/ [Concomitant]
     Dosage: 125 unit, UNK
     Route: 048
  8. ORTHO-CYCLEN [Concomitant]
     Dosage: UNK UNK, qd
     Route: 048
  9. VITAMIN E                          /00110501/ [Concomitant]
     Dosage: UNK
  10. ANTIBIOTICS [Concomitant]
     Dosage: UNK UNK, bid
     Route: 048
  11. PRENATAL                           /00231801/ [Concomitant]
     Dosage: UNK UNK, qd
  12. DEPO-PROVERA [Concomitant]
     Dosage: 150 mg/ml, q3mo

REACTIONS (19)
  - Induced labour [Recovered/Resolved]
  - Eczema [Unknown]
  - Oedema peripheral [Unknown]
  - Gait disturbance [Unknown]
  - Dysstasia [Unknown]
  - Arthralgia [Unknown]
  - Fatigue [Unknown]
  - Weight increased [Unknown]
  - Swelling [Unknown]
  - Tinel^s sign [Unknown]
  - Joint swelling [Unknown]
  - Arthritis [Unknown]
  - Joint range of motion decreased [Unknown]
  - Joint effusion [Unknown]
  - Joint crepitation [Unknown]
  - Cough [Unknown]
  - Fall [Unknown]
  - Tenderness [Unknown]
  - Hypoaesthesia [Unknown]
